FAERS Safety Report 12168815 (Version 2)
Quarter: 2016Q1

REPORT INFORMATION
  Report Type: Spontaneous
  Country: FR (occurrence: FR)
  Receive Date: 20160310
  Receipt Date: 20160322
  Transmission Date: 20160526
  Serious: Yes (Death, Life-Threatening, Other)
  Sender: FDA-Public Use
  Company Number: FR-ELI_LILLY_AND_COMPANY-FR201603002205

PATIENT
  Age: 46 Year
  Sex: Female

DRUGS (4)
  1. SMECTA                             /07327601/ [Concomitant]
     Indication: PRODUCT USED FOR UNKNOWN INDICATION
     Dosage: 1 DF, TID
     Route: 065
  2. ZYPADHERA [Suspect]
     Active Substance: OLANZAPINE PAMOATE
     Indication: SCHIZOAFFECTIVE DISORDER
     Dosage: 405 MG, MONTHLY (1/M)
     Route: 030
     Dates: start: 201401
  3. LOXAPAC                            /00401801/ [Suspect]
     Active Substance: LOXAPINE SUCCINATE
     Indication: PRODUCT USED FOR UNKNOWN INDICATION
     Dosage: 25 MG, EACH EVENING
     Route: 048
     Dates: start: 20160204
  4. HALDOL DECANOATE [Suspect]
     Active Substance: HALOPERIDOL DECANOATE
     Indication: PRODUCT USED FOR UNKNOWN INDICATION
     Dosage: 300 MG, MONTHLY (1/M)
     Route: 030

REACTIONS (13)
  - Brain oedema [Unknown]
  - Atrial flutter [Unknown]
  - Brain death [Fatal]
  - Asthenia [Unknown]
  - Headache [Unknown]
  - Cardio-respiratory arrest [Fatal]
  - Coma [Unknown]
  - Diarrhoea [Unknown]
  - Dilatation ventricular [Unknown]
  - Abdominal compartment syndrome [Unknown]
  - Pulmonary artery dilatation [Unknown]
  - Bronchiolitis [Unknown]
  - Vomiting [Unknown]

NARRATIVE: CASE EVENT DATE: 20160204
